FAERS Safety Report 7547512-X (Version None)
Quarter: 2011Q2

REPORT INFORMATION
  Report Type: 
  Country: None (occurrence: None)
  Receive Date: 20110614
  Receipt Date: 20110609
  Transmission Date: 20111010
  Serious: No
  Sender: FDA-Public Use
  Company Number: US-PFIZER INC-2011126925

PATIENT
  Sex: Female

DRUGS (2)
  1. GABAPENTIN [Concomitant]
     Dosage: UNK
  2. PRISTIQ [Suspect]
     Dosage: UNK

REACTIONS (2)
  - FAECES DISCOLOURED [None]
  - MEDICATION RESIDUE [None]
